FAERS Safety Report 24861743 (Version 4)
Quarter: 2025Q4

REPORT INFORMATION
  Report Type: Spontaneous
  Country: CA (occurrence: CA)
  Receive Date: 20250120
  Receipt Date: 20251002
  Transmission Date: 20260119
  Serious: Yes (Hospitalization, Other)
  Sender: CELLTRION
  Company Number: CA-PFIZER INC-202400226841

PATIENT

DRUGS (7)
  1. INFLECTRA [Suspect]
     Active Substance: INFLIXIMAB-DYYB
     Indication: Crohn^s disease
     Dosage: 555 MG, W 0, 2, 6 WEEKS THEN EVERY 8 WEEKS
     Dates: start: 20240712
  2. INFLECTRA [Suspect]
     Active Substance: INFLIXIMAB-DYYB
     Dosage: UNK (AFTER 2 WEEKS)
     Dates: start: 20240726
  3. INFLECTRA [Suspect]
     Active Substance: INFLIXIMAB-DYYB
     Dosage: 555 MG, W 0, 2, 6 WEEKS THEN EVERY 8 WEEKS
     Dates: start: 20241019
  4. INFLECTRA [Suspect]
     Active Substance: INFLIXIMAB-DYYB
     Dosage: 555 MG, W 0, 2, 6 WEEKS THEN EVERY 8 WEEKS
     Dates: start: 20241206
  5. INFLECTRA [Suspect]
     Active Substance: INFLIXIMAB-DYYB
     Dosage: 555 MG, W 0, 2, 6 WEEKS THEN EVERY 8 WEEKS
     Dates: start: 20241206
  6. INFLECTRA [Suspect]
     Active Substance: INFLIXIMAB-DYYB
     Dosage: 555 MG, W 0, 2, 6 WEEKS THEN EVERY 8 WEEKS
     Dates: start: 20250517
  7. PREDNISONE [Concomitant]
     Active Substance: PREDNISONE
     Dosage: 1 DF 8 TABS A DAY, TAPERING DOSE

REACTIONS (5)
  - Bladder cancer [Unknown]
  - Viral infection [Unknown]
  - Condition aggravated [Unknown]
  - Drug specific antibody present [Unknown]
  - Pain [Unknown]

NARRATIVE: CASE EVENT DATE: 20240101
